FAERS Safety Report 20705287 (Version 1)
Quarter: 2022Q2

REPORT INFORMATION
  Report Type: Report from Study
  Country: MX (occurrence: MX)
  Receive Date: 20220413
  Receipt Date: 20220413
  Transmission Date: 20220721
  Serious: Yes (Other)
  Sender: FDA-Public Use
  Company Number: MX-NOVARTISPH-NVSC2022MX083697

PATIENT
  Sex: Female
  Weight: 55 kg

DRUGS (2)
  1. METFORMIN HYDROCHLORIDE\VILDAGLIPTIN [Suspect]
     Active Substance: METFORMIN HYDROCHLORIDE\VILDAGLIPTIN
     Indication: Diabetes mellitus inadequate control
     Dosage: 1 DOSAGE FORM, BID (50/500MG)
     Route: 048
     Dates: start: 2013, end: 2017
  2. METFORMIN HYDROCHLORIDE\VILDAGLIPTIN [Suspect]
     Active Substance: METFORMIN HYDROCHLORIDE\VILDAGLIPTIN
     Dosage: 1 UNK, BID, (50/850MG)
     Route: 048
     Dates: start: 2017

REACTIONS (9)
  - Cataract [Unknown]
  - Hypoacusis [Unknown]
  - Fall [Unknown]
  - Mouth haemorrhage [Unknown]
  - Joint swelling [Unknown]
  - General physical health deterioration [Unknown]
  - Musculoskeletal discomfort [Unknown]
  - Intervertebral disc degeneration [Unknown]
  - Limb discomfort [Unknown]

NARRATIVE: CASE EVENT DATE: 20210101
